FAERS Safety Report 8131379-5 (Version None)
Quarter: 2012Q1

REPORT INFORMATION
  Report Type: 
  Country: None (occurrence: None)
  Receive Date: 20120210
  Receipt Date: 20120210
  Transmission Date: 20120608
  Serious: No
  Sender: FDA-Public Use
  Company Number: None

PATIENT
  Age: 62 Year
  Sex: Male
  Weight: 70.8 kg

DRUGS (2)
  1. PROTAMINE SULFATE [Suspect]
     Indication: SURGERY
     Dosage: 20 MG ONCE IV
     Route: 042
     Dates: start: 20100818, end: 20100818
  2. PROTAMINE SULFATE [Suspect]
     Indication: CARDIOVASCULAR DISORDER
     Dosage: 20 MG ONCE IV
     Route: 042
     Dates: start: 20100818, end: 20100818

REACTIONS (4)
  - BRADYCARDIA [None]
  - HYPOTENSION [None]
  - CARDIAC INDEX DECREASED [None]
  - RASH MACULAR [None]
